FAERS Safety Report 10598433 (Version 1)
Quarter: 2014Q4

REPORT INFORMATION
  Report Type: Spontaneous
  Country: US (occurrence: None)
  Receive Date: 20141119
  Receipt Date: 20141119
  Transmission Date: 20150529
  Serious: No
  Sender: FDA-Public Use
  Company Number: 1000070187

PATIENT
  Age: 64 Year
  Sex: Male

DRUGS (6)
  1. NADOLOL. [Concomitant]
     Active Substance: NADOLOL
  2. LISINOPRIL ( LISINOPRIL) (LISINOPRIL) [Concomitant]
  3. SINGULAIR [Concomitant]
     Active Substance: MONTELUKAST SODIUM
  4. EYE DROPS [Concomitant]
     Active Substance: TETRAHYDROZOLINE HYDROCHLORIDE
  5. SYMBICORT ( BUDESONIDE W FORMOTEROL FUMARATE) (BUDESONIDE W/FORMOTEROL FUMARATE) [Concomitant]
  6. TUDORZA PRESSAIR [Suspect]
     Active Substance: ACLIDINIUM BROMIDE
     Indication: CHRONIC OBSTRUCTIVE PULMONARY DISEASE
     Dosage: 400 MCG ( 400 MCG, 1 IN 1 D), RESPIRATORY ( INHALATION)
     Route: 055
     Dates: start: 20140717

REACTIONS (5)
  - Oedema peripheral [None]
  - Nasal dryness [None]
  - Sinus headache [None]
  - Chest discomfort [None]
  - Intentional product misuse [None]

NARRATIVE: CASE EVENT DATE: 2014
